FAERS Safety Report 11296182 (Version 2)
Quarter: 2015Q4

REPORT INFORMATION
  Report Type: Spontaneous
  Country: US (occurrence: US)
  Receive Date: 20150722
  Receipt Date: 20151027
  Transmission Date: 20160304
  Serious: No
  Sender: FDA-Public Use
  Company Number: US-ELI_LILLY_AND_COMPANY-US201005007038

PATIENT
  Sex: Female

DRUGS (3)
  1. FORTEO [Suspect]
     Active Substance: TERIPARATIDE
     Indication: OSTEOPOROSIS
     Dosage: 20 UG, DAILY (1/D)
     Dates: start: 20100501
  2. EVISTA [Suspect]
     Active Substance: RALOXIFENE HYDROCHLORIDE
     Indication: OSTEOPOROSIS
  3. CALCIUM [Concomitant]
     Active Substance: CALCIUM

REACTIONS (6)
  - Fatigue [Unknown]
  - Drug ineffective [Unknown]
  - Skin discomfort [Unknown]
  - Generalised erythema [Unknown]
  - Injection site reaction [Unknown]
  - Dry skin [Unknown]
